FAERS Safety Report 5145795-7 (Version None)
Quarter: 2006Q4

REPORT INFORMATION
  Report Type: 
  Country: None (occurrence: None)
  Receive Date: 20061108
  Receipt Date: 20061030
  Transmission Date: 20070319
  Serious: Yes (Disabling, Other)
  Sender: FDA-Public Use
  Company Number: GB-SP-2006-02881

PATIENT
  Age: 52 Year
  Sex: Male

DRUGS (1)
  1. IMMUCYST [Suspect]
     Indication: BLADDER CANCER
     Route: 043
     Dates: start: 20060811

REACTIONS (4)
  - ARTHRITIS [None]
  - NAUSEA [None]
  - URINARY RETENTION [None]
  - VOMITING [None]
